FAERS Safety Report 4515756-7 (Version None)
Quarter: 2004Q4

REPORT INFORMATION
  Report Type: 
  Country: None (occurrence: None)
  Receive Date: 20041201
  Receipt Date: 20041122
  Transmission Date: 20050328
  Serious: Yes (Life-Threatening, Hospitalization, Disabling)
  Sender: FDA-Public Use
  Company Number: US-MERCK-0411USA03590

PATIENT
  Age: 57 Year
  Sex: Female

DRUGS (3)
  1. VIOXX [Suspect]
     Indication: ARTHRITIS
     Route: 048
     Dates: start: 20000101, end: 20020201
  2. INFLUENZA VIRUS VACCINE (UNSPECIFIED) [Concomitant]
     Indication: PROPHYLAXIS
     Route: 065
  3. ZYRTEC [Concomitant]
     Route: 065

REACTIONS (4)
  - CARDIAC ARREST [None]
  - MEDICATION ERROR [None]
  - MYOCARDIAL INFARCTION [None]
  - STOMACH DISCOMFORT [None]
